FAERS Safety Report 4718051-6 (Version None)
Quarter: 2005Q3

REPORT INFORMATION
  Report Type: 
  Country: None (occurrence: None)
  Receive Date: 20050718
  Receipt Date: 20050718
  Transmission Date: 20060218
  Serious: Yes (Death)
  Sender: FDA-Public Use
  Company Number: None

PATIENT
  Age: 52 Year
  Sex: Male
  Weight: 95.2554 kg

DRUGS (1)
  1. FENTANYL [Suspect]
     Indication: BACK PAIN
     Dosage: 1 PATCH EVERY 72 HRS TRANDSDEMERAL
     Route: 062
     Dates: start: 20050713, end: 20050714

REACTIONS (7)
  - BACK PAIN [None]
  - BLOOD PRESSURE INCREASED [None]
  - CARDIAC ARREST [None]
  - CONDITION AGGRAVATED [None]
  - HEART RATE INCREASED [None]
  - LOSS OF CONSCIOUSNESS [None]
  - PAIN [None]
